FAERS Safety Report 9360042 (Version 1)
Quarter: 2013Q2

REPORT INFORMATION
  Report Type: Spontaneous
  Country: US (occurrence: None)
  Receive Date: 20130620
  Receipt Date: 20130620
  Transmission Date: 20140414
  Serious: Yes (Disabling, Other)
  Sender: FDA-Public Use
  Company Number: None

PATIENT
  Age: 50 Year
  Sex: Female
  Weight: 75 kg

DRUGS (1)
  1. TOPIRAMATE [Suspect]
     Dosage: TOPIRAMATE 200MG GENERIC TOPAMAX 1PILL TWICE DAY ORAL
     Route: 048
     Dates: start: 201108, end: 20130426

REACTIONS (3)
  - Cerebrovascular accident [None]
  - Amnesia [None]
  - Activities of daily living impaired [None]
